FAERS Safety Report 7837662-2 (Version None)
Quarter: 2011Q4

REPORT INFORMATION
  Report Type: 
  Country: None (occurrence: None)
  Receive Date: 20111024
  Receipt Date: 20110421
  Transmission Date: 20120403
  Serious: No
  Sender: FDA-Public Use
  Company Number: US-ABBOTT-11P-163-0721067-00

PATIENT
  Age: 36 Year
  Sex: Female
  Weight: 61.29 kg

DRUGS (3)
  1. LUPRON DEPOT [Suspect]
     Indication: ENDOMETRIOSIS
     Dates: start: 20110401
  2. MIRALAX [Concomitant]
     Indication: LAXATIVE SUPPORTIVE CARE
  3. AMBIEN [Concomitant]
     Indication: INSOMNIA

REACTIONS (1)
  - VAGINAL HAEMORRHAGE [None]
